FAERS Safety Report 20709909 (Version 1)
Quarter: 2022Q2

REPORT INFORMATION
  Report Type: Spontaneous
  Country: BR (occurrence: BR)
  Receive Date: 20220414
  Receipt Date: 20220414
  Transmission Date: 20220721
  Serious: Yes (Hospitalization, Other)
  Sender: FDA-Public Use
  Company Number: BR-AMGEN-BRASP2022064056

PATIENT
  Age: 59 Year
  Sex: Female
  Weight: 52 kg

DRUGS (14)
  1. REPATHA [Suspect]
     Active Substance: EVOLOCUMAB
     Indication: Blood cholesterol increased
     Dosage: 140 MILLIGRAM, Q2WK
     Route: 058
     Dates: start: 20220322
  2. ENALAPRIL [Concomitant]
     Active Substance: ENALAPRIL
     Indication: Product used for unknown indication
     Dosage: 10 MILLIGRAM, BID
  3. ENALAPRIL [Concomitant]
     Active Substance: ENALAPRIL
     Route: 065
  4. ENALAPRIL [Concomitant]
     Active Substance: ENALAPRIL
     Route: 065
  5. ENALAPRIL [Concomitant]
     Active Substance: ENALAPRIL
     Route: 065
  6. ENALAPRIL [Concomitant]
     Active Substance: ENALAPRIL
     Route: 065
  7. ENALAPRIL [Concomitant]
     Active Substance: ENALAPRIL
     Route: 065
  8. ENALAPRIL [Concomitant]
     Active Substance: ENALAPRIL
     Route: 065
  9. AMLODIPINE [Concomitant]
     Active Substance: AMLODIPINE BESYLATE
     Dosage: 5 MILLIGRAM, BID
  10. EZETIMIBE [Concomitant]
     Active Substance: EZETIMIBE
     Dosage: 10 MILLIGRAM
  11. ASPIRIN\DIHYDROXYALUMINUM AMINOACETATE ANHYDROUS\MAGNESIUM CARBONATE [Concomitant]
     Active Substance: ASPIRIN\DIHYDROXYALUMINUM AMINOACETATE ANHYDROUS\MAGNESIUM CARBONATE
     Dosage: 81 MILLIGRAM
  12. MONOCORDIL [Concomitant]
     Active Substance: ISOSORBIDE MONONITRATE
     Dosage: 20 MILLIGRAM
  13. ATENOLOL [Concomitant]
     Active Substance: ATENOLOL
     Dosage: 50 MILLIGRAM, BID
  14. METOPROLOL [Concomitant]
     Active Substance: METOPROLOL
     Dosage: UNK

REACTIONS (4)
  - Myocardial infarction [Recovered/Resolved]
  - Device difficult to use [Unknown]
  - Injection site pain [Not Recovered/Not Resolved]
  - Headache [Unknown]

NARRATIVE: CASE EVENT DATE: 20220101
